FAERS Safety Report 7865475-4 (Version None)
Quarter: 2011Q4

REPORT INFORMATION
  Report Type: 
  Country: None (occurrence: None)
  Receive Date: 20111028
  Receipt Date: 20110105
  Transmission Date: 20120403
  Serious: No
  Sender: FDA-Public Use
  Company Number: US-GLAXOSMITHKLINE-A0903345A

PATIENT
  Age: 67 Year
  Sex: Male

DRUGS (4)
  1. ADVAIR DISKUS 100/50 [Suspect]
     Indication: CHRONIC OBSTRUCTIVE PULMONARY DISEASE
     Dosage: 1PUFF IN THE MORNING
     Route: 055
     Dates: start: 20070101
  2. SPIRIVA [Concomitant]
  3. PLAVIX [Concomitant]
  4. LISINOPRIL AND HYDROCHLOROTHIAZIDE [Concomitant]

REACTIONS (3)
  - COUGH [None]
  - PERTUSSIS [None]
  - EXPIRED DRUG ADMINISTERED [None]
